FAERS Safety Report 25146811 (Version 1)
Quarter: 2025Q2

REPORT INFORMATION
  Report Type: Spontaneous
  Country: US (occurrence: US)
  Receive Date: 20250401
  Receipt Date: 20250401
  Transmission Date: 20250717
  Serious: Yes (Hospitalization)
  Sender: BEXIMCO PHARMACEUTICALS
  Company Number: US-BEXIMCO-2025BEX00022

PATIENT
  Age: 82 Year
  Sex: Female

DRUGS (5)
  1. CARVEDILOL [Suspect]
     Active Substance: CARVEDILOL
     Dosage: 25 MG, 2X/DAY
  2. CARVEDILOL [Suspect]
     Active Substance: CARVEDILOL
  3. AMLODIPINE [Suspect]
     Active Substance: AMLODIPINE BESYLATE
     Dosage: 5 MG, 1X/DAY
  4. LISINOPRIL [Suspect]
     Active Substance: LISINOPRIL
     Dosage: 20 MG, 1X/DAY
  5. SPIRONOLACTONE [Suspect]
     Active Substance: SPIRONOLACTONE
     Dosage: 50 MG, 1X/DAY

REACTIONS (1)
  - BRASH syndrome [Recovering/Resolving]
